FAERS Safety Report 16029704 (Version 5)
Quarter: 2019Q2

REPORT INFORMATION
  Report Type: Spontaneous
  Country: US (occurrence: US)
  Receive Date: 20190304
  Receipt Date: 20190422
  Transmission Date: 20190711
  Serious: Yes (Hospitalization, Other)
  Sender: FDA-Public Use
  Company Number: US-JNJFOC-20190232599

PATIENT
  Age: 92 Year
  Sex: Female
  Weight: 54.43 kg

DRUGS (12)
  1. LEVAQUIN [Suspect]
     Active Substance: LEVOFLOXACIN
     Indication: BRONCHITIS
     Route: 048
     Dates: start: 20170218, end: 20190220
  2. LEVOTHYROXINE. [Concomitant]
     Active Substance: LEVOTHYROXINE
     Route: 065
  3. DILTIAZEM. [Concomitant]
     Active Substance: DILTIAZEM
     Indication: CORONARY ARTERY DISEASE
     Route: 065
  4. LEVAQUIN [Suspect]
     Active Substance: LEVOFLOXACIN
     Indication: RESPIRATORY TRACT INFECTION BACTERIAL
     Route: 048
     Dates: start: 2017
  5. XARELTO [Concomitant]
     Active Substance: RIVAROXABAN
     Route: 065
  6. VITAMIN D3 [Concomitant]
     Active Substance: CHOLECALCIFEROL
     Route: 065
  7. LEVAQUIN [Suspect]
     Active Substance: LEVOFLOXACIN
     Indication: BRONCHITIS
     Route: 048
     Dates: start: 2018, end: 2018
  8. LEVAQUIN [Suspect]
     Active Substance: LEVOFLOXACIN
     Indication: RESPIRATORY TRACT INFECTION BACTERIAL
     Route: 048
     Dates: start: 20170218, end: 20190220
  9. LEVAQUIN [Suspect]
     Active Substance: LEVOFLOXACIN
     Indication: RESPIRATORY TRACT INFECTION BACTERIAL
     Route: 048
     Dates: start: 2018, end: 2018
  10. AMLODIPINE [Concomitant]
     Active Substance: AMLODIPINE BESYLATE
     Route: 065
  11. LEVAQUIN [Suspect]
     Active Substance: LEVOFLOXACIN
     Indication: BRONCHITIS
     Route: 048
     Dates: start: 2017
  12. PRESERVISION [Concomitant]
     Active Substance: MINERALS\VITAMINS
     Route: 065

REACTIONS (6)
  - Pain in extremity [Not Recovered/Not Resolved]
  - Inflammation [Unknown]
  - Hypersensitivity [Unknown]
  - Feeling abnormal [Not Recovered/Not Resolved]
  - Eye disorder [Not Recovered/Not Resolved]
  - Tendon rupture [Recovering/Resolving]

NARRATIVE: CASE EVENT DATE: 2017
